FAERS Safety Report 18544394 (Version 1)
Quarter: 2020Q4

REPORT INFORMATION
  Report Type: Spontaneous
  Country: US (occurrence: US)
  Receive Date: 20201125
  Receipt Date: 20201125
  Transmission Date: 20210114
  Serious: Yes (Life-Threatening, Hospitalization, Other)
  Sender: FDA-Public Use
  Company Number: US-009507513-2011USA013741

PATIENT
  Age: 57 Year
  Sex: Female
  Weight: 122.5 kg

DRUGS (25)
  1. METOPROLOL. [Suspect]
     Active Substance: METOPROLOL
     Dosage: UNK
     Route: 048
  2. LASIX [Concomitant]
     Active Substance: FUROSEMIDE
  3. ATACAND [Suspect]
     Active Substance: CANDESARTAN CILEXETIL
     Dosage: 32 MG, DAILY
     Route: 048
     Dates: start: 20101109, end: 20101129
  4. ANUSOL HC [Concomitant]
     Active Substance: HYDROCORTISONE
     Indication: SLEEP DISORDER
     Dosage: 1 AS NEEDED
  5. RANEXA [Concomitant]
     Active Substance: RANOLAZINE
     Indication: ANGINA PECTORIS
     Dosage: 500 MG, 2X/DAY
     Route: 065
  6. ATENOLOL. [Suspect]
     Active Substance: ATENOLOL
     Route: 048
  7. ASPIRIN. [Concomitant]
     Active Substance: ASPIRIN
     Indication: CARDIAC DISORDER
     Dosage: 81 MG DAILY, 2 DF PRN
     Route: 065
  8. GOLYTELY [Concomitant]
     Active Substance: POLYETHYLENE GLYCOL 3350\POTASSIUM CHLORIDE\SODIUM BICARBONATE\SODIUM CHLORIDE\SODIUM SULFATE
     Indication: FUNCTIONAL GASTROINTESTINAL DISORDER
     Dosage: 1 CONTAINER IN SOLUTION EVERY TWO WEEKS
     Route: 065
  9. SYNTHROID [Concomitant]
     Active Substance: LEVOTHYROXINE SODIUM
     Indication: THYROID THERAPY
  10. ATACAND [Suspect]
     Active Substance: CANDESARTAN CILEXETIL
     Indication: PRODUCT USED FOR UNKNOWN INDICATION
     Dosage: 16 MG, DAILY
     Route: 048
     Dates: start: 20101019
  11. ANUSOL HC [Concomitant]
     Active Substance: HYDROCORTISONE
     Indication: PAIN
     Dosage: 5/325 MG 4 TIMES A DAY
     Route: 065
  12. ANUSOL HC (BENZYL BENZOATE (+) BISMUTH OXIDE (+) BISMUTH SUBGALLATE (+ [Concomitant]
     Indication: PAIN
     Dosage: 1 AS NEEDED
     Route: 065
  13. ANUSOL HC (BENZYL BENZOATE (+) BISMUTH OXIDE (+) BISMUTH SUBGALLATE (+ [Concomitant]
     Indication: HAEMORRHAGE
     Dosage: UNK
  14. NITROSTAT [Concomitant]
     Active Substance: NITROGLYCERIN
     Indication: ANGINA PECTORIS
     Dosage: 0.4 MG 0-5 DAILY AS NEEDED
     Route: 065
  15. LORAZEPAM. [Concomitant]
     Active Substance: LORAZEPAM
     Indication: PROCEDURAL ANXIETY
     Dosage: .5 MG, 3X/DAY
     Route: 065
  16. ZOCOR [Concomitant]
     Active Substance: SIMVASTATIN
     Indication: HYPERCHOLESTEROLAEMIA
     Dosage: 40 MG DAILY
     Route: 065
  17. PRINIVIL [Suspect]
     Active Substance: LISINOPRIL
     Route: 048
  18. FENTANYL. [Suspect]
     Active Substance: FENTANYL
     Dosage: UNK
     Route: 048
  19. LEVOTHYROXINE SODIUM. [Concomitant]
     Active Substance: LEVOTHYROXINE SODIUM
     Indication: THYROID DISORDER
     Dosage: 112 UG QAM
     Route: 065
  20. OMEPRAZOLE. [Concomitant]
     Active Substance: OMEPRAZOLE
     Indication: GASTROOESOPHAGEAL REFLUX DISEASE
     Dosage: 20 MG QAM
     Route: 048
  21. OMEPRAZOLE. [Concomitant]
     Active Substance: OMEPRAZOLE
     Indication: BARRETT^S OESOPHAGUS
     Dosage: 20 MILLIGRAM, QD
     Route: 048
  22. ASPIRIN. [Concomitant]
     Active Substance: ASPIRIN
     Indication: PAIN
     Dosage: 2 DF PRN
  23. ATACAND [Suspect]
     Active Substance: CANDESARTAN CILEXETIL
     Dosage: 32 MG, DAILY
     Route: 048
     Dates: start: 20110111, end: 20110414
  24. LORAZEPAM. [Concomitant]
     Active Substance: LORAZEPAM
     Indication: PROCEDURAL PAIN
     Dosage: 1.5 MILLIGRAM, QD
  25. NITROSTAT [Concomitant]
     Active Substance: NITROGLYCERIN
     Dosage: UNK
     Route: 065

REACTIONS (18)
  - Cough [Unknown]
  - Dyspnoea [Unknown]
  - Blood count abnormal [Unknown]
  - Renal disorder [Unknown]
  - Dehydration [Recovering/Resolving]
  - Carotid artery occlusion [Unknown]
  - Cerebrovascular accident [Recovered/Resolved]
  - Pruritus [Unknown]
  - Drug hypersensitivity [Unknown]
  - Flatulence [Unknown]
  - Hypotension [Unknown]
  - Abdominal pain [Unknown]
  - Angina pectoris [Unknown]
  - Abdominal distension [Unknown]
  - Bradycardia [Unknown]
  - Colitis ulcerative [Unknown]
  - Diarrhoea [Recovered/Resolved]
  - Lactose intolerance [Unknown]

NARRATIVE: CASE EVENT DATE: 20101129
